FAERS Safety Report 17207387 (Version 1)
Quarter: 2019Q4

REPORT INFORMATION
  Report Type: Spontaneous
  Country: US (occurrence: US)
  Receive Date: 20191227
  Receipt Date: 20191227
  Transmission Date: 20200122
  Serious: Yes (Other)
  Sender: FDA-Public Use
  Company Number: US-MYLANLABS-2019M1125997

PATIENT
  Age: 39 Year
  Sex: Female
  Weight: 91 kg

DRUGS (1)
  1. THIOTHIXENE CAPSULES, USP [Suspect]
     Active Substance: THIOTHIXENE
     Indication: SCHIZOPHRENIA
     Dosage: UNK
     Route: 048

REACTIONS (4)
  - Suicidal ideation [Not Recovered/Not Resolved]
  - Anxiety [Not Recovered/Not Resolved]
  - Impaired work ability [Not Recovered/Not Resolved]
  - Product dose omission [Not Recovered/Not Resolved]

NARRATIVE: CASE EVENT DATE: 20191129
